FAERS Safety Report 8488373-4 (Version None)
Quarter: 2012Q3

REPORT INFORMATION
  Report Type: 
  Country: None (occurrence: None)
  Receive Date: 20120705
  Receipt Date: 20120628
  Transmission Date: 20120928
  Serious: Yes (Other)
  Sender: FDA-Public Use
  Company Number: US-BAYER-2012-065959

PATIENT
  Age: 47 Year
  Sex: Female

DRUGS (6)
  1. CELEBREX [Concomitant]
  2. SEROQUEL [Concomitant]
     Dosage: 50 MG, BID
     Route: 048
  3. DROSPIRENONE AND ETHINYL ESTRADIOL [Suspect]
  4. TRAZODONE HYDROCHLORIDE [Concomitant]
     Dosage: 100 MG, DAILY
     Route: 048
  5. VENLAFAXINE HYDROCHOLRIDE [Concomitant]
     Dosage: 75 MG, BID
     Route: 048
  6. YAZ [Suspect]

REACTIONS (1)
  - DEEP VEIN THROMBOSIS [None]
